FAERS Safety Report 21047884 (Version 1)
Quarter: 2022Q3

REPORT INFORMATION
  Report Type: Spontaneous
  Country: US (occurrence: None)
  Receive Date: 20220705
  Receipt Date: 20220705
  Transmission Date: 20221027
  Serious: Yes (unspecified)
  Sender: FDA-Public Use
  Company Number: None

PATIENT
  Age: 69 Year
  Sex: Female

DRUGS (1)
  1. REPATHA [Suspect]
     Active Substance: EVOLOCUMAB
     Indication: Hyperlipidaemia
     Dosage: FREQUENCY : EVERY OTHER WEEK;?
     Route: 058
     Dates: start: 20220412, end: 20220703

REACTIONS (5)
  - Joint swelling [None]
  - Hypersensitivity [None]
  - Oedema peripheral [None]
  - Oedema peripheral [None]
  - Oedema peripheral [None]

NARRATIVE: CASE EVENT DATE: 20220523
